FAERS Safety Report 13719337 (Version 2)
Quarter: 2017Q3

REPORT INFORMATION
  Report Type: Report from Study
  Country: FR (occurrence: FR)
  Receive Date: 20170705
  Receipt Date: 20170714
  Transmission Date: 20171127
  Serious: Yes (Death, Life-Threatening, Hospitalization)
  Sender: FDA-Public Use
  Company Number: FR-BRISTOL-MYERS SQUIBB COMPANY-BMS-2016-056894

PATIENT
  Age: 67 Year
  Sex: Female
  Weight: 57 kg

DRUGS (5)
  1. FENOFIBRATE. [Concomitant]
     Active Substance: FENOFIBRATE
     Indication: PRODUCT USED FOR UNKNOWN INDICATION
     Dosage: UNK
     Route: 065
     Dates: end: 20160803
  2. FUROSEMIDE. [Concomitant]
     Active Substance: FUROSEMIDE
     Indication: PRODUCT USED FOR UNKNOWN INDICATION
     Dosage: UNK
     Route: 065
     Dates: end: 20160803
  3. NIVOLUMAB [Suspect]
     Active Substance: NIVOLUMAB
     Indication: METASTATIC RENAL CELL CARCINOMA
     Dosage: 162 MG, UNK
     Route: 042
     Dates: start: 20160331
  4. BISOPROLOL [Concomitant]
     Active Substance: BISOPROLOL
     Indication: PRODUCT USED FOR UNKNOWN INDICATION
     Dosage: UNK
     Route: 065
     Dates: end: 20160803
  5. GINKOR                             /00838501/ [Concomitant]
     Indication: PRODUCT USED FOR UNKNOWN INDICATION
     Dosage: UNK
     Route: 065
     Dates: end: 20160803

REACTIONS (2)
  - General physical condition abnormal [Fatal]
  - Hypercalcaemia [Not Recovered/Not Resolved]

NARRATIVE: CASE EVENT DATE: 20160707
